FAERS Safety Report 5714761-2 (Version None)
Quarter: 2008Q2

REPORT INFORMATION
  Report Type: 
  Country: None (occurrence: None)
  Receive Date: 20080423
  Receipt Date: 20060601
  Transmission Date: 20081010
  Serious: Yes (Death, Other)
  Sender: FDA-Public Use
  Company Number: US-ROCHE-450060

PATIENT
  Sex: Male
  Weight: 90.7 kg

DRUGS (9)
  1. CAPECITABINE [Suspect]
     Indication: COLORECTAL CANCER
     Dosage: DOSE TAKEN FROM PROTOCOL SYNOPSIS REPORTED DOSE  =  42000.00
     Route: 048
     Dates: start: 20060328, end: 20060509
  2. BEVACIZUMAB [Suspect]
     Indication: COLORECTAL CANCER
     Dosage: INFO TAKEN FROM PROTOCOL SYNOPSIS REPORTED FREQUENCY D1 + D15
     Route: 042
     Dates: start: 20060328, end: 20060425
  3. OXALIPLATIN [Suspect]
     Indication: COLORECTAL CANCER
     Dosage: INFO TAKEN FROM PROTOCOL SYNOPSIS REPORTED FREQUENCY D1 + D15
     Route: 042
     Dates: start: 20060328, end: 20060425
  4. VERAPAMIL [Concomitant]
  5. ZOCOR [Concomitant]
  6. ATIVAN [Concomitant]
  7. FLOMAX [Concomitant]
  8. FLOMAX [Concomitant]
  9. HALDOL [Concomitant]

REACTIONS (6)
  - ABDOMINAL PAIN [None]
  - BLOOD POTASSIUM DECREASED [None]
  - DEATH [None]
  - DIARRHOEA [None]
  - ERYTHEMA [None]
  - PAIN IN EXTREMITY [None]
